FAERS Safety Report 19658008 (Version 1)
Quarter: 2021Q3

REPORT INFORMATION
  Report Type: Spontaneous
  Country: GB (occurrence: GB)
  Receive Date: 20210804
  Receipt Date: 20210804
  Transmission Date: 20211014
  Serious: Yes (Hospitalization)
  Sender: FDA-Public Use
  Company Number: GB-TEVA-2021-GB-1937779

PATIENT
  Age: 60 Year
  Sex: Female
  Weight: 56.24 kg

DRUGS (4)
  1. FENTANIL [Suspect]
     Active Substance: FENTANYL
     Indication: SEDATIVE THERAPY
     Dosage: 50 MICROGRAM
     Dates: start: 20210720, end: 20210720
  2. SERTRALINE [Concomitant]
     Active Substance: SERTRALINE HYDROCHLORIDE
     Indication: ILL-DEFINED DISORDER
  3. MOVIPREP [Suspect]
     Active Substance: ASCORBIC ACID\POLYETHYLENE GLYCOL 3350\POTASSIUM CHLORIDE\SODIUM ASCORBATE\SODIUM CHLORIDE\SODIUM SULFATE
     Indication: ILL-DEFINED DISORDER
     Dosage: 3350
     Route: 048
     Dates: start: 20210719, end: 20210719
  4. MIDAZOLAM. [Suspect]
     Active Substance: MIDAZOLAM
     Indication: SEDATIVE THERAPY
     Dosage: 2.5 MG
     Route: 051
     Dates: start: 20210720, end: 20210720

REACTIONS (7)
  - Vomiting [Unknown]
  - Delirium [Unknown]
  - Sedation complication [Unknown]
  - Dehydration [Recovering/Resolving]
  - Syncope [Unknown]
  - Chills [Unknown]
  - Overdose [Unknown]

NARRATIVE: CASE EVENT DATE: 20210720
